FAERS Safety Report 17162746 (Version 1)
Quarter: 2019Q4

REPORT INFORMATION
  Report Type: Spontaneous
  Country: SE (occurrence: SE)
  Receive Date: 20191217
  Receipt Date: 20191217
  Transmission Date: 20200122
  Serious: Yes (Hospitalization)
  Sender: FDA-Public Use
  Company Number: SE-TEVA-2019-SE-1152508

PATIENT
  Sex: Male

DRUGS (3)
  1. THERALEN [Suspect]
     Active Substance: TRIMEPRAZINE
     Dosage: 1 ML
     Route: 048
     Dates: start: 20180203, end: 20180203
  2. STESOLID [Suspect]
     Active Substance: DIAZEPAM
     Dosage: 65-70 MG
     Route: 048
     Dates: start: 20180203, end: 20180203
  3. LERGIGAN [PROMETHAZINE HYDROCHLORIDE] [Suspect]
     Active Substance: PROMETHAZINE HYDROCHLORIDE
     Dosage: 200-225 MG
     Route: 048
     Dates: start: 20180203, end: 20180203

REACTIONS (2)
  - Tachycardia [Unknown]
  - Intentional overdose [Unknown]

NARRATIVE: CASE EVENT DATE: 20180203
